FAERS Safety Report 24547316 (Version 1)
Quarter: 2024Q4

REPORT INFORMATION
  Report Type: Spontaneous
  Country: FR (occurrence: FR)
  Receive Date: 20241025
  Receipt Date: 20241025
  Transmission Date: 20250115
  Serious: Yes (Hospitalization)
  Sender: ACCORD
  Company Number: None

PATIENT
  Sex: Female
  Weight: 2.34 kg

DRUGS (3)
  1. PACLITAXEL [Suspect]
     Active Substance: PACLITAXEL
     Indication: Triple negative breast cancer
     Dates: start: 20220825, end: 20221013
  2. EPIRUBICIN [Suspect]
     Active Substance: EPIRUBICIN
     Indication: Triple negative breast cancer
     Dates: start: 20220602, end: 20220804
  3. CYCLOPHOSPHAMIDE [Suspect]
     Active Substance: CYCLOPHOSPHAMIDE
     Indication: Triple negative breast cancer
     Dates: start: 20220602, end: 20220804

REACTIONS (3)
  - Cerebral ventricle dilatation [Not Recovered/Not Resolved]
  - Foetal growth restriction [Recovered/Resolved]
  - Neurodevelopmental disorder [Not Recovered/Not Resolved]

NARRATIVE: CASE EVENT DATE: 20220101
